FAERS Safety Report 9891601 (Version 1)
Quarter: 2014Q1

REPORT INFORMATION
  Report Type: Spontaneous
  Country: US (occurrence: None)
  Receive Date: 20140207
  Receipt Date: 20140207
  Transmission Date: 20141002
  Serious: Yes (Death)
  Sender: FDA-Public Use
  Company Number: SYM-2014-15431

PATIENT
  Age: 48 Year
  Sex: Male

DRUGS (4)
  1. METFORMIN (METFORMIN) (METFORMIN) [Suspect]
     Indication: PRODUCT USED FOR UNKNOWN INDICATION
     Dosage: ORAL UNKNOWN - UNKNOWN THERAPY DATES
     Route: 048
  2. METOPROLOL (METOPROLOL) (METOPROLOL) [Suspect]
     Indication: PRODUCT USED FOR UNKNOWN INDICATION
  3. FUROSEMIDE (FUROSEMIDE) (FUROSEMIDE) [Suspect]
     Indication: PRODUCT USED FOR UNKNOWN INDICATION
     Dosage: ORAL  UNKNOWN - UNKNOWN THERAPY DATES
     Route: 048
  4. SITAGLIPTIN [Suspect]
     Dosage: ORAL UNKNOWN - UNKNOWN THERAPY DATES
     Route: 048

REACTIONS (3)
  - Completed suicide [None]
  - Toxicity to various agents [None]
  - Exposure via ingestion [None]
